FAERS Safety Report 9856358 (Version 1)
Quarter: 2014Q1

REPORT INFORMATION
  Report Type: Spontaneous
  Country: US (occurrence: None)
  Receive Date: 20140128
  Receipt Date: 20140128
  Transmission Date: 20141002
  Serious: Yes (Death)
  Sender: FDA-Public Use
  Company Number: 2014AP000388

PATIENT
  Age: 49 Year
  Sex: Female

DRUGS (2)
  1. PAROXETINE HCL [Suspect]
  2. MORPHINE [Suspect]

REACTIONS (1)
  - Drug abuse [None]
